FAERS Safety Report 24814392 (Version 1)
Quarter: 2025Q1

REPORT INFORMATION
  Report Type: Spontaneous
  Country: US (occurrence: US)
  Receive Date: 20250107
  Receipt Date: 20250107
  Transmission Date: 20250408
  Serious: Yes (Hospitalization, Other)
  Sender: AUROBINDO
  Company Number: US-AUROBINDO-AUR-APL-2025-000102

PATIENT
  Age: 9 Year
  Sex: Male

DRUGS (8)
  1. METHYLPREDNISOLONE SODIUM SUCCINATE [Suspect]
     Active Substance: METHYLPREDNISOLONE SODIUM SUCCINATE
     Indication: Febrile infection-related epilepsy syndrome
     Route: 042
  2. KETAMINE HYDROCHLORIDE [Suspect]
     Active Substance: KETAMINE HYDROCHLORIDE
     Indication: Febrile infection-related epilepsy syndrome
     Route: 042
  3. DEXAMETHASONE [Suspect]
     Active Substance: DEXAMETHASONE
     Indication: Febrile infection-related epilepsy syndrome
     Route: 037
  4. MIDAZOLAM [Suspect]
     Active Substance: MIDAZOLAM
     Indication: Febrile infection-related epilepsy syndrome
     Route: 042
  5. PENTOBARBITAL [Suspect]
     Active Substance: PENTOBARBITAL
     Indication: Febrile infection-related epilepsy syndrome
     Route: 042
  6. IMMUNE GLOBULIN NOS [Suspect]
     Active Substance: IMMUNE GLOBULIN NOS
     Indication: Febrile infection-related epilepsy syndrome
     Route: 042
  7. ANAKINRA [Suspect]
     Active Substance: ANAKINRA
     Indication: Febrile infection-related epilepsy syndrome
     Route: 058
  8. ANAKINRA [Suspect]
     Active Substance: ANAKINRA
     Route: 042

REACTIONS (5)
  - Drug ineffective [Recovering/Resolving]
  - Impaired gastric emptying [Recovering/Resolving]
  - Hypotension [Recovering/Resolving]
  - Hypertension [Recovering/Resolving]
  - Off label use [Recovering/Resolving]
